FAERS Safety Report 16077087 (Version 1)
Quarter: 2019Q2

REPORT INFORMATION
  Report Type: Spontaneous
  Country: US (occurrence: US)
  Receive Date: 20190314
  Receipt Date: 20190314
  Transmission Date: 20190711
  Serious: Yes (Other)
  Sender: FDA-Public Use
  Company Number: None

PATIENT
  Age: 81 Year
  Sex: Female
  Weight: 68.4 kg

DRUGS (1)
  1. EMEND (FOSAPREPITANT DIMEGLUMINE) [Suspect]
     Active Substance: FOSAPREPITANT DIMEGLUMINE
     Indication: PROPHYLAXIS OF NAUSEA AND VOMITING
     Dosage: ?          OTHER FREQUENCY:PRIOR TO CHEMOTHER;?
     Route: 041
     Dates: start: 20190314, end: 20190314

REACTIONS (2)
  - Infusion related reaction [None]
  - Back pain [None]

NARRATIVE: CASE EVENT DATE: 20190314
